FAERS Safety Report 5956966-1 (Version None)
Quarter: 2008Q4

REPORT INFORMATION
  Report Type: 
  Country: None (occurrence: None)
  Receive Date: 20081117
  Receipt Date: 20081117
  Transmission Date: 20090506
  Serious: Yes (Hospitalization)
  Sender: FDA-Public Use
  Company Number: None

PATIENT
  Age: 75 Year
  Sex: Male

DRUGS (1)
  1. DEFERASIROX [Suspect]
     Indication: MYELODYSPLASTIC SYNDROME
     Dosage: 1250 MG EVERY DAY PO
     Route: 048
     Dates: start: 20070702, end: 20070730

REACTIONS (2)
  - BLOOD CREATININE INCREASED [None]
  - BLOOD UREA INCREASED [None]
